FAERS Safety Report 5488162-9 (Version None)
Quarter: 2007Q3

REPORT INFORMATION
  Report Type: 
  Country: None (occurrence: None)
  Receive Date: 20070927
  Receipt Date: 20070724
  Transmission Date: 20080115
  Serious: Yes (Other)
  Sender: FDA-Public Use
  Company Number: FABR-12090

PATIENT
  Age: 46 Year
  Sex: Male
  Weight: 95 kg

DRUGS (3)
  1. FABRAZYME [Suspect]
     Indication: FABRY'S DISEASE
     Dosage: 3 MG/KG Q2WKS IV
     Route: 042
     Dates: start: 19980609, end: 19980804
  2. FABRAZYME [Suspect]
     Indication: FABRY'S DISEASE
     Dosage: 1 MG/KG Q2WKS, IV
     Route: 042
     Dates: start: 20010412, end: 20030624
  3. FABRAZYME [Suspect]
     Indication: FABRY'S DISEASE
     Dosage: 95 MG Q2WKS IV
     Route: 042
     Dates: start: 20030601

REACTIONS (1)
  - HEART RATE DECREASED [None]
